FAERS Safety Report 23648230 (Version 1)
Quarter: 2024Q1

REPORT INFORMATION
  Report Type: Report from Study
  Country: US (occurrence: US)
  Receive Date: 20240319
  Receipt Date: 20240319
  Transmission Date: 20240410
  Serious: Yes (Other)
  Sender: FDA-Public Use
  Company Number: US-GILEAD-2024-0665985

PATIENT
  Sex: Male

DRUGS (2)
  1. AMBRISENTAN [Suspect]
     Active Substance: AMBRISENTAN
     Indication: Pulmonary hypertension
     Dosage: 5 MG, QD
     Route: 065
     Dates: start: 20200115
  2. TYVASO [Concomitant]
     Active Substance: TREPROSTINIL
     Dosage: 4 DOSAGE FORM, QID

REACTIONS (2)
  - Neoplasm malignant [Unknown]
  - Blood iron decreased [Unknown]
